FAERS Safety Report 13528050 (Version 1)
Quarter: 2017Q2

REPORT INFORMATION
  Report Type: Spontaneous
  Country: AU (occurrence: AU)
  Receive Date: 20170509
  Receipt Date: 20170509
  Transmission Date: 20170830
  Serious: Yes (Hospitalization, Other)
  Sender: FDA-Public Use
  Company Number: AU-MYLANLABS-2017M1027559

PATIENT

DRUGS (6)
  1. BUPRENORPHINE. [Suspect]
     Active Substance: BUPRENORPHINE
     Dosage: 1.4 MG; DIVIDED DOSES. LATER, RECEIVED 1.6 MG SUBLINGUALLY
     Route: 060
  2. NALOXONE W/OXYCODONE [Suspect]
     Active Substance: NALOXONE HYDROCHLORIDE\OXYCODONE HYDROCHLORIDE
     Indication: BREAKTHROUGH PAIN
     Dosage: 5 MG/2.5 MG
     Route: 065
  3. ROPIVACAINE [Concomitant]
     Active Substance: ROPIVACAINE
     Indication: GENERAL ANAESTHESIA
     Dosage: 0.2% ROPIVACAINE INFUSION COMMENCED AT 5 ML/HOUR
     Route: 050
  4. PREGABALIN. [Suspect]
     Active Substance: PREGABALIN
     Indication: BREAKTHROUGH PAIN
     Dosage: 75 MG; THREE DOSES
     Route: 065
  5. BUPRENORPHINE. [Suspect]
     Active Substance: BUPRENORPHINE
     Dosage: 1.6 MG; DIVIDED DOSES.
     Route: 060
  6. BUPRENORPHINE. [Suspect]
     Active Substance: BUPRENORPHINE
     Indication: BREAKTHROUGH PAIN
     Dosage: INITIAL DOSE UNKNOWN; HOWEVER, LATER RECEIVED 1.4 MG SUBLINGUALLY
     Route: 065

REACTIONS (3)
  - Nervous system disorder [Recovered/Resolved]
  - Respiratory depression [Recovered/Resolved]
  - Loss of consciousness [Recovered/Resolved]
